FAERS Safety Report 9554046 (Version 3)
Quarter: 2013Q4

REPORT INFORMATION
  Report Type: Spontaneous
  Country: CN (occurrence: CN)
  Receive Date: 20130925
  Receipt Date: 20131111
  Transmission Date: 20140711
  Serious: Yes (Hospitalization, Other)
  Sender: FDA-Public Use
  Company Number: CN-GILEAD-2013-0083732

PATIENT
  Age: 69 Year
  Sex: Female
  Weight: 54 kg

DRUGS (7)
  1. VIREAD [Suspect]
     Indication: HIV INFECTION
     Dosage: 0.3 G, QD
     Route: 048
     Dates: start: 20130506, end: 20130529
  2. EFAVIRENZ [Suspect]
     Indication: HIV INFECTION
     Dosage: 0.6 G, QD
     Route: 065
     Dates: start: 20130506, end: 20130521
  3. LAMIVUDINE [Concomitant]
     Indication: HIV INFECTION
     Dosage: UNK
     Dates: start: 20130506, end: 20130729
  4. KALETRA [Concomitant]
     Indication: HIV INFECTION
     Dosage: UNK
     Dates: start: 20130521, end: 20130729
  5. ABACAVIR [Concomitant]
     Indication: HIV INFECTION
     Dosage: UNK
     Dates: start: 20130529, end: 20130723
  6. STAVUDINE [Concomitant]
     Indication: HIV INFECTION
     Dosage: UNK
     Dates: start: 20130729, end: 20130729
  7. SULFAMETHOXAZOLE [Concomitant]
     Dosage: UNK
     Dates: start: 20130506, end: 20130521

REACTIONS (11)
  - Encephalopathy [Unknown]
  - Tuberculosis [Unknown]
  - Cerebral infarction [Unknown]
  - Cerebral atrophy [Unknown]
  - Electrolyte imbalance [Unknown]
  - Type 2 diabetes mellitus [Unknown]
  - Poor quality sleep [Recovered/Resolved]
  - Nightmare [Recovered/Resolved]
  - Pollakiuria [Unknown]
  - Enuresis [Unknown]
  - Dizziness [Recovered/Resolved]
